FAERS Safety Report 8963130 (Version 2)
Quarter: 2013Q2

REPORT INFORMATION
  Report Type: Report from Study
  Country: US (occurrence: US)
  Receive Date: 20121213
  Receipt Date: 20130508
  Transmission Date: 20140414
  Serious: Yes (Hospitalization, Other)
  Sender: FDA-Public Use
  Company Number: US-ABBOTT-12P-163-1019431-00

PATIENT
  Sex: Female
  Weight: 99.88 kg

DRUGS (9)
  1. HUMIRA [Suspect]
     Indication: RHEUMATOID ARTHRITIS
     Dosage: FOR 90 DAYS
     Route: 058
     Dates: start: 201202, end: 201207
  2. UNKNOWN MEDICATION [Concomitant]
     Indication: HYPERTENSION
  3. VITAMIN B-12 [Concomitant]
     Indication: PRODUCT USED FOR UNKNOWN INDICATION
  4. VITAMIN D3 [Concomitant]
     Indication: PRODUCT USED FOR UNKNOWN INDICATION
  5. VITAMIN C [Concomitant]
     Indication: PRODUCT USED FOR UNKNOWN INDICATION
  6. NEXIUM [Concomitant]
     Indication: GASTROOESOPHAGEAL REFLUX DISEASE
  7. PREMARIN [Concomitant]
     Indication: MENOPAUSE
  8. CYMBALTA [Concomitant]
     Indication: ARTHRALGIA
  9. CYMBALTA [Concomitant]
     Indication: ARTHRALGIA

REACTIONS (11)
  - Device dislocation [Recovered/Resolved]
  - Arthritis [Recovered/Resolved]
  - Fungal infection [Recovered/Resolved]
  - Abasia [Recovered/Resolved]
  - Activities of daily living impaired [Recovered/Resolved]
  - Pain [Recovered/Resolved]
  - Device related infection [Recovered/Resolved]
  - Arthritis infective [Not Recovered/Not Resolved]
  - Arthralgia [Not Recovered/Not Resolved]
  - Skin wound [Recovered/Resolved]
  - Skin ulcer [Recovered/Resolved]
